FAERS Safety Report 8220357-3 (Version None)
Quarter: 2012Q1

REPORT INFORMATION
  Report Type: 
  Country: None (occurrence: None)
  Receive Date: 20120320
  Receipt Date: 20120309
  Transmission Date: 20120608
  Serious: Yes (Disabling)
  Sender: FDA-Public Use
  Company Number: CA-CELGENEUS-028-21880-12021244

PATIENT

DRUGS (16)
  1. LYRICA [Concomitant]
     Route: 065
     Dates: start: 20120104
  2. WARFARIN SODIUM [Concomitant]
     Route: 065
     Dates: start: 20020101
  3. SODIUM PHOSPHATES [Concomitant]
     Route: 065
     Dates: start: 20110911, end: 20110911
  4. PAMIDRONATE DISODIUM [Concomitant]
     Route: 065
     Dates: start: 20100801
  5. HYDROMORPHONE HCL [Concomitant]
     Route: 065
     Dates: start: 20120104
  6. TENORMIN [Concomitant]
     Route: 065
     Dates: start: 20020101, end: 20110916
  7. ALDACTONE [Concomitant]
     Route: 065
     Dates: start: 20110917
  8. SYNTHROID [Concomitant]
     Route: 065
     Dates: start: 20081201
  9. PACKED RED BLOOD CELLS - IRRADIATED [Concomitant]
     Dosage: 2 UNITS
     Route: 041
     Dates: start: 20111004, end: 20111004
  10. REVLIMID [Suspect]
     Indication: MULTIPLE MYELOMA
     Route: 048
  11. DEXAMETHASONE [Suspect]
     Indication: MULTIPLE MYELOMA
     Route: 065
  12. DILAUDID [Concomitant]
     Route: 065
     Dates: start: 20111018
  13. ALDACTONE [Concomitant]
     Route: 065
     Dates: start: 20030101, end: 20110916
  14. RED BLOOD CELLS [Concomitant]
     Route: 041
     Dates: start: 20111025, end: 20111026
  15. TENORMIN [Concomitant]
     Route: 065
     Dates: start: 20110917
  16. SODIUM CHLORIDE [Concomitant]
     Route: 041
     Dates: start: 20110913, end: 20110913

REACTIONS (1)
  - ABASIA [None]
